FAERS Safety Report 16719978 (Version 3)
Quarter: 2019Q4

REPORT INFORMATION
  Report Type: Spontaneous
  Country: US (occurrence: US)
  Receive Date: 20190820
  Receipt Date: 20191115
  Transmission Date: 20200122
  Serious: No
  Sender: FDA-Public Use
  Company Number: US-PFIZER INC-2019355932

PATIENT
  Age: 29 Year
  Sex: Male
  Weight: 136.5 kg

DRUGS (6)
  1. SOMAVERT [Suspect]
     Active Substance: PEGVISOMANT
     Dosage: 60 MG, 1X/DAY
     Dates: start: 201810
  2. OCTREOTIDE. [Concomitant]
     Active Substance: OCTREOTIDE
     Indication: ACROMEGALY
     Dosage: 200 UG, UNK (200MCG INJECTION EVERY 2 HOURS)
     Dates: start: 201703
  3. SOMAVERT [Suspect]
     Active Substance: PEGVISOMANT
     Indication: ACROMEGALY
     Dosage: 60 MG, DAILY
     Route: 058
     Dates: start: 201704
  4. CABERGOLINE. [Suspect]
     Active Substance: CABERGOLINE
     Indication: ACROMEGALY
     Dosage: 1 MG, 2X/WEEK
     Dates: start: 201810
  5. CABERGOLINE. [Suspect]
     Active Substance: CABERGOLINE
     Dosage: 0.5 MG, 2X/WEEK
     Dates: start: 2019
  6. SANDOSTATIN LAR DEPOT [Concomitant]
     Active Substance: OCTREOTIDE ACETATE
     Indication: ACROMEGALY
     Dosage: 30 MG, UNK (30MG INJECTION ONCE EVERY 3 WEEKS)
     Dates: start: 201707

REACTIONS (1)
  - Insulin-like growth factor increased [Not Recovered/Not Resolved]

NARRATIVE: CASE EVENT DATE: 20190726
